FAERS Safety Report 25995951 (Version 1)
Quarter: 2025Q4

REPORT INFORMATION
  Report Type: Spontaneous
  Country: MA (occurrence: MA)
  Receive Date: 20251104
  Receipt Date: 20251104
  Transmission Date: 20260117
  Serious: Yes (Death)
  Sender: PFIZER
  Company Number: MA-PFIZER INC-202500214025

PATIENT
  Sex: Female

DRUGS (1)
  1. INLYTA [Suspect]
     Active Substance: AXITINIB
     Dosage: 5
     Dates: start: 20241129

REACTIONS (1)
  - Death [Fatal]

NARRATIVE: CASE EVENT DATE: 20251020
